FAERS Safety Report 16690912 (Version 1)
Quarter: 2019Q3

REPORT INFORMATION
  Report Type: Spontaneous
  Country: AR (occurrence: AR)
  Receive Date: 20190812
  Receipt Date: 20190812
  Transmission Date: 20191004
  Serious: Yes (Other)
  Sender: FDA-Public Use
  Company Number: AR-AMGEN-ARGSP2019127487

PATIENT
  Age: 50 Year
  Sex: Female

DRUGS (1)
  1. ENBREL [Suspect]
     Active Substance: ETANERCEPT
     Indication: PSORIATIC ARTHROPATHY
     Dosage: 50 MILLIGRAM, 2 TIMES/WK
     Route: 065
     Dates: start: 20180206

REACTIONS (3)
  - Pain [Unknown]
  - Product use issue [Unknown]
  - Arthralgia [Unknown]

NARRATIVE: CASE EVENT DATE: 20180206
